FAERS Safety Report 9776376 (Version 1)
Quarter: 2013Q4

REPORT INFORMATION
  Report Type: Spontaneous
  Country: US (occurrence: US)
  Receive Date: 20131220
  Receipt Date: 20131220
  Transmission Date: 20140711
  Serious: Yes (Other)
  Sender: FDA-Public Use
  Company Number: US-ABBVIE-13P-163-1179681-00

PATIENT
  Sex: Female
  Weight: 88.98 kg

DRUGS (3)
  1. HUMIRA [Suspect]
     Indication: CROHN^S DISEASE
     Route: 058
     Dates: start: 20131010, end: 20131010
  2. HUMIRA [Suspect]
     Route: 058
     Dates: start: 20131024, end: 20131024
  3. HUMIRA [Suspect]
     Route: 058
     Dates: start: 20131107, end: 20131210

REACTIONS (3)
  - Nasal polyps [Not Recovered/Not Resolved]
  - Fungal infection [Not Recovered/Not Resolved]
  - Sinusitis [Recovered/Resolved]
